FAERS Safety Report 8941310 (Version 3)
Quarter: 2013Q3

REPORT INFORMATION
  Report Type: Report from Study
  Country: JP (occurrence: JP)
  Receive Date: 20121203
  Receipt Date: 20130711
  Transmission Date: 20140515
  Serious: Yes (Hospitalization, Other)
  Sender: FDA-Public Use
  Company Number: JP-009507513-1208JPN002529

PATIENT
  Age: 64 Year
  Sex: Female
  Weight: 52 kg

DRUGS (11)
  1. PEGINTRON [Suspect]
     Indication: CHRONIC HEPATITIS C
     Dosage: 1.5 MICROGRAM PER KILOGRAM, QW
     Route: 058
     Dates: start: 20120306, end: 20120421
  2. PEGINTRON [Suspect]
     Dosage: 1.5 MICROGRAM PER KILOGRAM, QW
     Route: 058
     Dates: start: 20120515
  3. REBETOL [Suspect]
     Indication: CHRONIC HEPATITIS C
     Dosage: 600 MG, QD
     Route: 048
     Dates: start: 20120306, end: 20120325
  4. REBETOL [Suspect]
     Dosage: 400 MG, QD
     Route: 048
     Dates: start: 20120326, end: 20120417
  5. REBETOL [Suspect]
     Dosage: 200 MG, QD
     Route: 048
     Dates: start: 20120418, end: 20120421
  6. REBETOL [Suspect]
     Dosage: 200 MG, QD
     Route: 048
     Dates: start: 20120515
  7. TELAVIC [Suspect]
     Indication: CHRONIC HEPATITIS C
     Dosage: 2250 MG, QD
     Route: 048
     Dates: start: 20120306, end: 20120417
  8. TELAVIC [Suspect]
     Dosage: 1500 MG, QD
     Route: 048
     Dates: start: 20120418, end: 20120421
  9. URSO [Concomitant]
     Indication: CHRONIC HEPATITIS C
     Dosage: 900 MG, QD
     Route: 048
     Dates: end: 20120330
  10. URSO [Concomitant]
     Dosage: 300 MG, QD
     Route: 048
     Dates: start: 20120331
  11. NEO-MINOPHAGEN C [Concomitant]
     Indication: CHRONIC HEPATITIS C
     Dosage: 60 ML, QD
     Route: 042

REACTIONS (3)
  - Anaemia [Recovering/Resolving]
  - Decreased appetite [Recovering/Resolving]
  - Malaise [Recovering/Resolving]
